FAERS Safety Report 18512165 (Version 1)
Quarter: 2020Q4

REPORT INFORMATION
  Report Type: Report from Study
  Country: MX (occurrence: MX)
  Receive Date: 20201117
  Receipt Date: 20201117
  Transmission Date: 20210114
  Serious: Yes (Other)
  Sender: FDA-Public Use
  Company Number: NVSC2020MX304087

PATIENT
  Sex: Male

DRUGS (1)
  1. ENTRESTO [Suspect]
     Active Substance: SACUBITRIL\VALSARTAN
     Indication: PRODUCT USED FOR UNKNOWN INDICATION
     Dosage: 50 MG, QD (STARTED MORE THAN AN YEAR AGO)
     Route: 048

REACTIONS (4)
  - Communication disorder [Unknown]
  - Underdose [Unknown]
  - Cerebrovascular disorder [Unknown]
  - Product prescribing error [Unknown]
